FAERS Safety Report 15211596 (Version 1)
Quarter: 2018Q3

REPORT INFORMATION
  Report Type: Spontaneous
  Country: US (occurrence: US)
  Receive Date: 20180702
  Receipt Date: 20180702
  Transmission Date: 20181010
  Serious: Yes (Life-Threatening)
  Sender: FDA-Public Use
  Company Number: None

PATIENT
  Age: 29 Year
  Sex: Female
  Weight: 68.76 kg

DRUGS (2)
  1. CAPECITABINE. [Suspect]
     Active Substance: CAPECITABINE
     Indication: BREAST CANCER FEMALE
     Route: 048
     Dates: start: 20180521
  2. CAPECITABINE 500MG [Concomitant]
     Active Substance: CAPECITABINE
     Dates: start: 20180521

REACTIONS (1)
  - Gastric disorder [None]

NARRATIVE: CASE EVENT DATE: 20180702
